FAERS Safety Report 9548985 (Version 1)
Quarter: 2013Q3

REPORT INFORMATION
  Report Type: Spontaneous
  Country: US (occurrence: None)
  Receive Date: 20130923
  Receipt Date: 20130923
  Transmission Date: 20140515
  Serious: No
  Sender: FDA-Public Use
  Company Number: None

PATIENT
  Age: 22 Year
  Sex: Female
  Weight: 58.97 kg

DRUGS (1)
  1. MITOMYCIN C [Suspect]
     Indication: PROPHYLAXIS
     Dosage: INTO THE EYE?

REACTIONS (7)
  - Vision blurred [None]
  - Corneal disorder [None]
  - Keratitis [None]
  - Scar [None]
  - Depression [None]
  - Post procedural complication [None]
  - Impaired healing [None]
